FAERS Safety Report 6741011-0 (Version None)
Quarter: 2010Q2

REPORT INFORMATION
  Report Type: 
  Country: None (occurrence: None)
  Receive Date: 20100526
  Receipt Date: 20100519
  Transmission Date: 20101027
  Serious: Yes (Other)
  Sender: FDA-Public Use
  Company Number: US-ASTRAZENECA-2010SE23051

PATIENT
  Age: 59 Year
  Sex: Female

DRUGS (2)
  1. SEROQUEL [Suspect]
     Route: 048
  2. PERCOCET [Concomitant]

REACTIONS (2)
  - RIB FRACTURE [None]
  - SYNCOPE [None]
